FAERS Safety Report 10469994 (Version 1)
Quarter: 2014Q3

REPORT INFORMATION
  Report Type: Spontaneous
  Country: US (occurrence: None)
  Receive Date: 20140922
  Receipt Date: 20140922
  Transmission Date: 20150326
  Serious: Yes (Disabling)
  Sender: FDA-Public Use
  Company Number: None

PATIENT
  Age: 65 Year
  Sex: Male
  Weight: 70.31 kg

DRUGS (1)
  1. JETREA [Suspect]
     Active Substance: OCRIPLASMIN
     Indication: MACULAR HOLE
     Dosage: 1 INJECTION, 1 INJECTION ONLY
     Dates: start: 20130916

REACTIONS (3)
  - Visual impairment [None]
  - Economic problem [None]
  - Macular fibrosis [None]

NARRATIVE: CASE EVENT DATE: 20130916
